FAERS Safety Report 9232074 (Version 1)
Quarter: 2013Q2

REPORT INFORMATION
  Report Type: Spontaneous
  Country: US (occurrence: US)
  Receive Date: 20130415
  Receipt Date: 20130415
  Transmission Date: 20140414
  Serious: No
  Sender: FDA-Public Use
  Company Number: US-PFIZER INC-2013105858

PATIENT
  Age: 55 Year
  Sex: Female
  Weight: 96.15 kg

DRUGS (5)
  1. FLECTOR [Suspect]
     Indication: PAIN
     Dosage: UNK
  2. FLECTOR [Suspect]
     Dosage: UNK
  3. OXYCODONE [Concomitant]
     Dosage: UNK
  4. SKELAXIN [Concomitant]
     Dosage: UNK
  5. TRAMADOL [Concomitant]
     Dosage: UNK

REACTIONS (1)
  - Drug ineffective [Unknown]
